FAERS Safety Report 24237663 (Version 1)
Quarter: 2024Q3

REPORT INFORMATION
  Report Type: Spontaneous
  Country: US (occurrence: None)
  Receive Date: 20240821
  Receipt Date: 20240821
  Transmission Date: 20241017
  Serious: Yes (Other)
  Sender: Public
  Company Number: None

PATIENT
  Age: 51 Year
  Sex: Female
  Weight: 117 kg

DRUGS (10)
  1. OZEMPIC [Suspect]
     Active Substance: SEMAGLUTIDE
     Indication: Type 2 diabetes mellitus
     Dosage: 1 INJECTION ONCE A WEEK SUBCUTANEOUS
     Route: 058
     Dates: start: 20220404, end: 20240525
  2. SYNTHROID [Concomitant]
  3. WELLBUTRIN [Concomitant]
  4. LISINOPRIL [Concomitant]
  5. multi-vitamin [Concomitant]
  6. SOY EXTRACT [Concomitant]
     Active Substance: SOY EXTRACT
  7. russian rhubarb [Concomitant]
  8. BORAGE OIL [Concomitant]
  9. FLAXSEED [Concomitant]
     Active Substance: FLAX SEED
  10. BIOTIN [Concomitant]

REACTIONS (7)
  - Dehydration [None]
  - Nausea [None]
  - Suicidal ideation [None]
  - Impaired gastric emptying [None]
  - Visual impairment [None]
  - Depression [None]
  - Abdominal discomfort [None]

NARRATIVE: CASE EVENT DATE: 20240601
